FAERS Safety Report 15792196 (Version 1)
Quarter: 2019Q1

REPORT INFORMATION
  Report Type: Report from Study
  Country: US (occurrence: US)
  Receive Date: 20190107
  Receipt Date: 20190107
  Transmission Date: 20190417
  Serious: Yes (Other)
  Sender: FDA-Public Use
  Company Number: US-AUROBINDO-AUR-APL-2018-063974

PATIENT
  Sex: Male

DRUGS (2)
  1. TRANEXAMIC ACID. [Suspect]
     Active Substance: TRANEXAMIC ACID
     Indication: PROCOAGULANT THERAPY
     Dosage: 1 GRAM IN 100ML OF 0.9% SODIUM CHLORIDE SALINE, INFUSED OVER 10 MINUTES
     Route: 065
  2. TRANEXAMIC ACID. [Suspect]
     Active Substance: TRANEXAMIC ACID
     Dosage: 1 G IN 100ML OF 0.9% SODIUM CHLORIDE, INFUSED OVER 8 HOURS
     Route: 042

REACTIONS (1)
  - Ischaemic stroke [Unknown]
